FAERS Safety Report 9287165 (Version 1)
Quarter: 2013Q2

REPORT INFORMATION
  Report Type: Spontaneous
  Country: US (occurrence: US)
  Receive Date: 20130513
  Receipt Date: 20130513
  Transmission Date: 20140414
  Serious: Yes (Hospitalization, Other)
  Sender: FDA-Public Use
  Company Number: US-ELI_LILLY_AND_COMPANY-US201305000363

PATIENT
  Age: 50 Year
  Sex: Male

DRUGS (8)
  1. OLANZAPINE [Suspect]
     Dosage: 15 MG, QD
  2. LITHIUM [Concomitant]
     Dosage: 1200 MG, QD
  3. DIVALPROEX [Concomitant]
     Dosage: 3000 MG, QD
  4. RISPERIDONE [Concomitant]
     Dosage: 6 MG, QD
  5. RISPERIDONE [Concomitant]
     Dosage: 3 MG, QD
  6. QUETIAPINE [Concomitant]
     Dosage: 600 MG, QD
  7. QUETIAPINE [Concomitant]
     Dosage: 200 MG, PRN
  8. LAMOTRIGINE [Concomitant]
     Indication: IMPULSE-CONTROL DISORDER
     Dosage: 25 MG, QD

REACTIONS (2)
  - Neuroleptic malignant syndrome [Recovered/Resolved]
  - Psychotic disorder [Unknown]
